FAERS Safety Report 18911309 (Version 2)
Quarter: 2021Q1

REPORT INFORMATION
  Report Type: Spontaneous
  Country: US (occurrence: US)
  Receive Date: 20210218
  Receipt Date: 20210223
  Transmission Date: 20210420
  Serious: No
  Sender: FDA-Public Use
  Company Number: US-PFIZER INC-2021169624

PATIENT
  Age: 67 Year
  Sex: Female
  Weight: 68.03 kg

DRUGS (2)
  1. ZOMETA [Concomitant]
     Active Substance: ZOLEDRONIC ACID
     Dosage: ONCE A MONTH
  2. IBRANCE [Suspect]
     Active Substance: PALBOCICLIB
     Dosage: 75 MG, CYCLIC [ONCE A DAY FOR TWO WEEKS AND THEN ONE WEEK OFF ]
     Dates: start: 202003

REACTIONS (3)
  - Off label use [Unknown]
  - Product use issue [Unknown]
  - White blood cell count decreased [Unknown]
